FAERS Safety Report 9371714 (Version 1)
Quarter: 2013Q2

REPORT INFORMATION
  Report Type: Spontaneous
  Country: US (occurrence: US)
  Receive Date: 20130627
  Receipt Date: 20130627
  Transmission Date: 20140414
  Serious: No
  Sender: FDA-Public Use
  Company Number: US-TEVA-414445USA

PATIENT
  Sex: Female
  Weight: 52.21 kg

DRUGS (5)
  1. QVAR [Suspect]
     Indication: ASTHMA
  2. CARDIZEM [Concomitant]
  3. DIGOXIN [Concomitant]
  4. SYNTHROID [Concomitant]
  5. ALBUTEROL [Concomitant]

REACTIONS (2)
  - Dyspnoea [Unknown]
  - Cough [Unknown]
